FAERS Safety Report 17420479 (Version 4)
Quarter: 2020Q2

REPORT INFORMATION
  Report Type: Report from Study
  Country: US (occurrence: US)
  Receive Date: 20200214
  Receipt Date: 20200406
  Transmission Date: 20200713
  Serious: Yes (Other)
  Sender: FDA-Public Use
  Company Number: NVSC2020US035768

PATIENT
  Age: 13 Year
  Sex: Female

DRUGS (3)
  1. ILARIS [Suspect]
     Active Substance: CANAKINUMAB
     Dosage: UNK
     Route: 065
     Dates: start: 20200206
  2. ILARIS [Suspect]
     Active Substance: CANAKINUMAB
     Dosage: UNK
     Route: 065
     Dates: start: 20200205
  3. ILARIS [Suspect]
     Active Substance: CANAKINUMAB
     Indication: JUVENILE IDIOPATHIC ARTHRITIS
     Dosage: 150 MG, Q4W
     Route: 058
     Dates: start: 201912

REACTIONS (16)
  - Injection site pain [Unknown]
  - Type I hypersensitivity [Unknown]
  - Flushing [Unknown]
  - Urticaria [Unknown]
  - Injection site pruritus [Unknown]
  - Therapy non-responder [Unknown]
  - Skin oedema [Unknown]
  - Anaphylactic reaction [Recovered/Resolved]
  - Erythema [Unknown]
  - Rash [Unknown]
  - Pruritus [Unknown]
  - Hypersensitivity [Unknown]
  - Throat irritation [Unknown]
  - Dyspnoea [Unknown]
  - Injection site swelling [Unknown]
  - Skin swelling [Unknown]

NARRATIVE: CASE EVENT DATE: 20200206
